FAERS Safety Report 6061609-5 (Version None)
Quarter: 2009Q1

REPORT INFORMATION
  Report Type: 
  Country: None (occurrence: None)
  Receive Date: 20090202
  Receipt Date: 20090123
  Transmission Date: 20090719
  Serious: Yes (Hospitalization, Disabling)
  Sender: FDA-Public Use
  Company Number: A0729294A

PATIENT
  Age: 52 Year
  Sex: Male

DRUGS (6)
  1. AVANDIA [Suspect]
     Route: 048
     Dates: start: 20010701, end: 20061101
  2. GLUCOPHAGE [Concomitant]
  3. INSULIN [Concomitant]
  4. AMARYL [Concomitant]
  5. GLUCOTROL [Concomitant]
  6. CELEBREX [Concomitant]

REACTIONS (2)
  - CARDIAC FAILURE CONGESTIVE [None]
  - MYOCARDIAL INFARCTION [None]
